FAERS Safety Report 9903974 (Version 1)
Quarter: 2014Q1

REPORT INFORMATION
  Report Type: Spontaneous
  Country: US (occurrence: US)
  Receive Date: 20140218
  Receipt Date: 20140218
  Transmission Date: 20141002
  Serious: No
  Sender: FDA-Public Use
  Company Number: US-BIOGENIDEC-2014BI012040

PATIENT
  Age: 46 Year
  Sex: Male

DRUGS (3)
  1. TECFIDERA [Suspect]
     Indication: MULTIPLE SCLEROSIS
     Route: 048
     Dates: start: 20140121
  2. SULFASALAZINE [Concomitant]
  3. AMPYRA [Concomitant]

REACTIONS (1)
  - Nasopharyngitis [Unknown]
